FAERS Safety Report 23770211 (Version 1)
Quarter: 2024Q2

REPORT INFORMATION
  Report Type: Spontaneous
  Country: US (occurrence: US)
  Receive Date: 20240422
  Receipt Date: 20240422
  Transmission Date: 20240716
  Serious: Yes (Other)
  Sender: FDA-Public Use
  Company Number: US-WOODWARD-2024-US-022002

PATIENT
  Age: 27 Year
  Sex: Female

DRUGS (1)
  1. CARVEDILOL [Suspect]
     Active Substance: CARVEDILOL
     Indication: Phaeochromocytoma
     Dosage: UNKNOWN

REACTIONS (1)
  - Phaeochromocytoma crisis [Unknown]
